FAERS Safety Report 9719815 (Version 2)
Quarter: 2013Q4

REPORT INFORMATION
  Report Type: Spontaneous
  Country: DE (occurrence: DE)
  Receive Date: 20131128
  Receipt Date: 20131205
  Transmission Date: 20140711
  Serious: Yes (Other)
  Sender: FDA-Public Use
  Company Number: DE-ROCHE-1309933

PATIENT
  Sex: Male

DRUGS (19)
  1. LUCENTIS [Suspect]
     Indication: AGE-RELATED MACULAR DEGENERATION
     Dosage: IN LEFT EYE
     Route: 050
     Dates: start: 200804
  2. LUCENTIS [Interacting]
     Dosage: RIGHT EYE
     Route: 050
     Dates: start: 201201
  3. LUCENTIS [Interacting]
     Dosage: LEFT EYE
     Route: 050
     Dates: start: 201208
  4. LUCENTIS [Interacting]
     Dosage: RIGHT EYE
     Route: 050
     Dates: start: 201309
  5. FLUVASTATIN [Interacting]
     Indication: LIPIDS INCREASED
     Route: 065
     Dates: start: 201005
  6. PANTOPRAZOLE [Concomitant]
     Route: 065
  7. AMIODARONE [Concomitant]
     Route: 065
  8. ACETYLSALICYLIC ACID [Concomitant]
     Route: 065
  9. BLOPRESS [Concomitant]
     Route: 065
  10. ACTONEL PLUS CALCIUM D [Concomitant]
  11. DULCOLAX (BISACODYL) [Concomitant]
  12. LACTULOSE [Concomitant]
  13. LAIF [Concomitant]
     Route: 065
  14. KEPPRA [Concomitant]
     Dosage: 750/1000 MG
     Route: 065
  15. VIMPAT [Concomitant]
     Route: 065
  16. TAVOR (GERMANY) [Concomitant]
     Route: 065
  17. NOVALGIN [Concomitant]
  18. METAMIZOLE SODIUM [Concomitant]
  19. LORMETAZEPAM [Concomitant]

REACTIONS (2)
  - Visual acuity reduced [Unknown]
  - Drug interaction [Unknown]
